FAERS Safety Report 7601205-9 (Version None)
Quarter: 2011Q3

REPORT INFORMATION
  Report Type: 
  Country: None (occurrence: None)
  Receive Date: 20110711
  Receipt Date: 20110705
  Transmission Date: 20111222
  Serious: Yes (Death, Life-Threatening, Hospitalization, Disabling)
  Sender: FDA-Public Use
  Company Number: CA-VIIV HEALTHCARE LIMITED-B0725831A

PATIENT
  Sex: Male
  Weight: 65.1 kg

DRUGS (10)
  1. ADVAIR DISKUS 100/50 [Concomitant]
     Route: 048
     Dates: start: 20090324, end: 20110518
  2. ALBUTEROL [Concomitant]
     Route: 055
     Dates: start: 20010101, end: 20110522
  3. MARAVIROC [Suspect]
     Indication: HIV INFECTION
     Dosage: 60MG TWICE PER DAY
     Route: 048
     Dates: start: 20081120, end: 20110518
  4. NASAL SPRAY [Concomitant]
     Route: 045
     Dates: end: 20110518
  5. FENTANYL [Concomitant]
     Route: 061
     Dates: start: 20080828, end: 20110518
  6. COMBIVIR [Suspect]
     Indication: HIV INFECTION
     Dosage: 1TAB TWICE PER DAY
     Route: 048
     Dates: start: 20081120, end: 20110518
  7. CENTRUM MULTIVITAMINS [Concomitant]
     Route: 048
     Dates: start: 20100501, end: 20100518
  8. HYDROMORPHONE HCL [Concomitant]
     Route: 048
     Dates: start: 20090730, end: 20110518
  9. DILANTIN [Concomitant]
     Route: 048
     Dates: start: 20070411, end: 20110518
  10. ATROVENT [Concomitant]
     Route: 055
     Dates: start: 20100923, end: 20110524

REACTIONS (1)
  - PULSELESS ELECTRICAL ACTIVITY [None]
